FAERS Safety Report 5958114-0 (Version None)
Quarter: 2008Q4

REPORT INFORMATION
  Report Type: 
  Country: None (occurrence: None)
  Receive Date: 20081117
  Receipt Date: 20081117
  Transmission Date: 20090506
  Serious: Yes (Other)
  Sender: FDA-Public Use
  Company Number: None

PATIENT
  Age: 43 Year
  Sex: Male
  Weight: 78.0187 kg

DRUGS (2)
  1. CYMBALTA [Suspect]
     Indication: ANXIETY
     Dosage: 60MG QD PO
     Route: 048
     Dates: start: 20080815, end: 20081010
  2. CYMBALTA [Suspect]
     Indication: DEPRESSION
     Dosage: 60MG QD PO
     Route: 048
     Dates: start: 20080815, end: 20081010

REACTIONS (9)
  - GAIT DISTURBANCE [None]
  - INAPPROPRIATE SCHEDULE OF DRUG ADMINISTRATION [None]
  - MOOD SWINGS [None]
  - MUSCLE SPASMS [None]
  - MUSCLE TWITCHING [None]
  - PARKINSONISM [None]
  - PSYCHOTIC DISORDER [None]
  - TREMOR [None]
  - WEIGHT DECREASED [None]
